FAERS Safety Report 10781509 (Version 1)
Quarter: 2015Q1

REPORT INFORMATION
  Report Type: Spontaneous
  Country: US (occurrence: US)
  Receive Date: 20150210
  Receipt Date: 20150210
  Transmission Date: 20150721
  Serious: Yes (Other)
  Sender: FDA-Public Use
  Company Number: US-BAYER-2015-017998

PATIENT
  Age: 77 Year
  Sex: Male

DRUGS (3)
  1. ANTIHEMOPHILIC FACTOR VIII (RECOMBINANT), SUCROSE FORMULATED [Suspect]
     Active Substance: ANTIHEMOPHILIC FACTOR, HUMAN RECOMBINANT
     Indication: BIOPSY SKIN
     Dosage: UNK
     Route: 042
     Dates: start: 2008
  2. ANTIHEMOPHILIC FACTOR VIII (RECOMBINANT), SUCROSE FORMULATED [Suspect]
     Active Substance: ANTIHEMOPHILIC FACTOR, HUMAN RECOMBINANT
     Indication: FACTOR VIII DEFICIENCY
  3. ANTIHEMOPHILIC FACTOR VIII (RECOMBINANT), SUCROSE FORMULATED [Suspect]
     Active Substance: ANTIHEMOPHILIC FACTOR, HUMAN RECOMBINANT
     Indication: RECTAL HAEMORRHAGE
     Dosage: UNK
     Dates: start: 1995

REACTIONS (2)
  - Anti factor VIII antibody positive [Recovered/Resolved]
  - Anti factor VIII antibody positive [Recovered/Resolved]

NARRATIVE: CASE EVENT DATE: 2001
